FAERS Safety Report 9411696 (Version 2)
Quarter: 2013Q4

REPORT INFORMATION
  Report Type: Spontaneous
  Country: US (occurrence: US)
  Receive Date: 20130722
  Receipt Date: 20131016
  Transmission Date: 20140711
  Serious: Yes (Other)
  Sender: FDA-Public Use
  Company Number: US-SANOFI-AVENTIS-2013SA072502

PATIENT
  Age: 69 Year
  Sex: Female

DRUGS (14)
  1. LANTUS SOLOSTAR [Suspect]
     Indication: TYPE 2 DIABETES MELLITUS
     Dosage: PRODUCT START DATE: 2-3 YEARS AGO DOSE:25 UNIT(S)
     Route: 058
  2. LANTUS SOLOSTAR [Suspect]
     Indication: TYPE 2 DIABETES MELLITUS
     Dosage: PRODUCT START DATE: 2-3 YEARS AGO DOSE:25 UNIT(S)
     Route: 058
  3. LANTUS SOLOSTAR [Suspect]
     Indication: TYPE 2 DIABETES MELLITUS
     Dosage: PRODUCT START DATE: 2-3 YEARS AGO DOSE:25 UNIT(S)
     Route: 058
  4. LANTUS SOLOSTAR [Suspect]
     Indication: TYPE 2 DIABETES MELLITUS
     Dosage: PRODUCT START DATE: 2-3 YEARS AGO DOSE:25 UNIT(S)
     Route: 058
  5. LANTUS SOLOSTAR [Suspect]
     Indication: TYPE 2 DIABETES MELLITUS
     Dosage: PRODUCT START DATE: 2-3 YEARS AGO DOSE:25 UNIT(S)
     Route: 058
  6. LANTUS SOLOSTAR [Suspect]
     Indication: TYPE 2 DIABETES MELLITUS
     Dosage: PRODUCT START DATE: 2-3 YEARS AGO DOSE:25 UNIT(S)
     Route: 058
  7. LANTUS SOLOSTAR [Suspect]
     Indication: TYPE 2 DIABETES MELLITUS
     Dosage: PRODUCT START DATE: 2-3 YEARS AGO DOSE:25 UNIT(S)
     Route: 058
  8. SOLOSTAR [Concomitant]
     Indication: TYPE 2 DIABETES MELLITUS
  9. SOLOSTAR [Concomitant]
     Indication: TYPE 2 DIABETES MELLITUS
  10. SOLOSTAR [Concomitant]
     Indication: TYPE 2 DIABETES MELLITUS
  11. SOLOSTAR [Concomitant]
     Indication: TYPE 2 DIABETES MELLITUS
  12. SOLOSTAR [Concomitant]
     Indication: TYPE 2 DIABETES MELLITUS
  13. SOLOSTAR [Concomitant]
     Indication: TYPE 2 DIABETES MELLITUS
  14. SOLOSTAR [Concomitant]
     Indication: TYPE 2 DIABETES MELLITUS

REACTIONS (13)
  - Breast cancer [Unknown]
  - Renal mass [Unknown]
  - Varices oesophageal [Unknown]
  - Arthritis [Not Recovered/Not Resolved]
  - Gait disturbance [Not Recovered/Not Resolved]
  - Arthralgia [Unknown]
  - Hepatic cyst [Unknown]
  - Renal cyst [Unknown]
  - Hepatic mass [Unknown]
  - Hepatic cirrhosis [Unknown]
  - Joint dislocation [Unknown]
  - Diverticulitis [Unknown]
  - Visual acuity reduced [Unknown]
